FAERS Safety Report 23338536 (Version 1)
Quarter: 2023Q4

REPORT INFORMATION
  Report Type: Spontaneous
  Country: US (occurrence: None)
  Receive Date: 20231225
  Receipt Date: 20231225
  Transmission Date: 20240110
  Serious: No
  Sender: FDA-Public Use
  Company Number: None

PATIENT
  Age: 28 Year
  Sex: Male
  Weight: 70.31 kg

DRUGS (2)
  1. PROPECIA [Suspect]
     Active Substance: FINASTERIDE
  2. Men^s One-a-Day multivitamin [Concomitant]

REACTIONS (6)
  - Erectile dysfunction [None]
  - Anorgasmia [None]
  - Ejaculation disorder [None]
  - Quality of life decreased [None]
  - Bradyphrenia [None]
  - Memory impairment [None]

NARRATIVE: CASE EVENT DATE: 20190731
